FAERS Safety Report 20843752 (Version 1)
Quarter: 2022Q2

REPORT INFORMATION
  Report Type: Spontaneous
  Country: US (occurrence: US)
  Receive Date: 20220518
  Receipt Date: 20220518
  Transmission Date: 20220721
  Serious: Yes (Other)
  Sender: FDA-Public Use
  Company Number: US-PFIZER INC-202200687257

PATIENT
  Age: 55 Year
  Sex: Male
  Weight: 72.57 kg

DRUGS (1)
  1. ACETYLCYSTEINE [Suspect]
     Active Substance: ACETYLCYSTEINE
     Indication: Bronchiectasis
     Dosage: UNK (INHALATION 4 TIMES A DAY, IT^S 20% INHALED SOLUTION, 25 PACK, 4 MILLILITERS PER VIAL)

REACTIONS (4)
  - Dyspnoea [Unknown]
  - Disease progression [Unknown]
  - Product dose omission issue [Unknown]
  - Product supply issue [Unknown]
